FAERS Safety Report 4762768-4 (Version None)
Quarter: 2005Q3

REPORT INFORMATION
  Report Type: 
  Country: None (occurrence: None)
  Receive Date: 20050907
  Receipt Date: 20050829
  Transmission Date: 20060218
  Serious: Yes (Hospitalization)
  Sender: FDA-Public Use
  Company Number: AU-MERCK-0508AUS00156

PATIENT
  Age: 46 Year
  Sex: Female

DRUGS (1)
  1. VIOXX [Suspect]
     Indication: RHEUMATOID ARTHRITIS
     Route: 048
     Dates: start: 20020101, end: 20041001

REACTIONS (2)
  - DRUG ADMINISTRATION ERROR [None]
  - MYOCARDIAL INFARCTION [None]
